FAERS Safety Report 25519274 (Version 1)
Quarter: 2025Q3

REPORT INFORMATION
  Report Type: Spontaneous
  Country: IR (occurrence: IR)
  Receive Date: 20250704
  Receipt Date: 20250704
  Transmission Date: 20251020
  Serious: Yes (Other)
  Sender: JOHNSON AND JOHNSON
  Company Number: IR-JNJFOC-20120521152

PATIENT
  Age: 9 Year
  Sex: Female

DRUGS (2)
  1. MEBENDAZOLE [Suspect]
     Active Substance: MEBENDAZOLE
     Indication: Strongyloidiasis
     Route: 065
  2. MEBENDAZOLE [Suspect]
     Active Substance: MEBENDAZOLE
     Indication: Strongyloidiasis
     Route: 065

REACTIONS (2)
  - Strongyloidiasis [Recovered/Resolved]
  - Leukopenia [Recovered/Resolved]
